FAERS Safety Report 18602391 (Version 3)
Quarter: 2021Q1

REPORT INFORMATION
  Report Type: Report from Study
  Country: JP (occurrence: JP)
  Receive Date: 20201211
  Receipt Date: 20210218
  Transmission Date: 20210419
  Serious: Yes (Other)
  Sender: FDA-Public Use
  Company Number: JP-CELLTRION INC.-2020JP024824

PATIENT

DRUGS (6)
  1. CT?P13 [Suspect]
     Active Substance: INFLIXIMAB-DYYB
     Indication: COLITIS ULCERATIVE
     Dosage: 360 MILLIGRAM (WEIGHT: 71.5 KG)
     Route: 041
     Dates: start: 20181013, end: 20181013
  2. AZATHIOPRINE. [Concomitant]
     Active Substance: AZATHIOPRINE
     Dosage: 50 MILLIGRAM/DAY
     Route: 048
     Dates: start: 20191112, end: 20200425
  3. AZATHIOPRINE. [Concomitant]
     Active Substance: AZATHIOPRINE
     Dosage: 100 MG/DAY
     Route: 048
     Dates: start: 20200502
  4. CT?P13 [Suspect]
     Active Substance: INFLIXIMAB-DYYB
     Dosage: 350 MILLIGRAM (WEIGHT: 69.6 KG)
     Route: 041
     Dates: start: 20190917, end: 20190917
  5. CT?P13 [Suspect]
     Active Substance: INFLIXIMAB-DYYB
     Dosage: 350 MILLIGRAM (WEIGHT: 70 KG)
     Route: 041
     Dates: start: 20201028, end: 20201028
  6. AZATHIOPRINE. [Concomitant]
     Active Substance: AZATHIOPRINE
     Indication: COLITIS ULCERATIVE
     Dosage: 100 MILLIGRAM/DAY
     Route: 048
     Dates: end: 20191111

REACTIONS (10)
  - Nasopharyngitis [Recovered/Resolved]
  - Hyperlipidaemia [Not Recovered/Not Resolved]
  - Gastroenteritis [Recovered/Resolved]
  - Product use issue [Unknown]
  - Helicobacter infection [Recovered/Resolved]
  - Chronic gastritis [Not Recovered/Not Resolved]
  - Alopecia [Not Recovered/Not Resolved]
  - Overdose [Unknown]
  - Hypertension [Not Recovered/Not Resolved]
  - Gastric polyps [Not Recovered/Not Resolved]

NARRATIVE: CASE EVENT DATE: 20181105
